FAERS Safety Report 18424679 (Version 2)
Quarter: 2020Q4

REPORT INFORMATION
  Report Type: Spontaneous
  Country: SE (occurrence: SE)
  Receive Date: 20201026
  Receipt Date: 20201028
  Transmission Date: 20210114
  Serious: Yes (Other)
  Sender: FDA-Public Use
  Company Number: SE-JNJFOC-20201023327

PATIENT
  Sex: Female

DRUGS (1)
  1. IPREN CAPSULES SOFT 400MG PR-010688 [Suspect]
     Active Substance: IBUPROFEN
     Indication: PRODUCT USED FOR UNKNOWN INDICATION
     Route: 048

REACTIONS (3)
  - Product physical consistency issue [Unknown]
  - Foreign body in throat [Unknown]
  - Dysphagia [Unknown]
